FAERS Safety Report 25488579 (Version 1)
Quarter: 2025Q2

REPORT INFORMATION
  Report Type: Report from Study
  Country: BR (occurrence: BR)
  Receive Date: 20250627
  Receipt Date: 20250627
  Transmission Date: 20250717
  Serious: Yes (Other)
  Sender: EMD SERONO INC
  Company Number: BR-Merck Healthcare KGaA-2025031798

PATIENT
  Age: 49 Year
  Sex: Female

DRUGS (4)
  1. MAVENCLAD [Suspect]
     Active Substance: CLADRIBINE
     Indication: Multiple sclerosis
     Dates: start: 20230525, end: 20230529
  2. MAVENCLAD [Suspect]
     Active Substance: CLADRIBINE
     Dates: start: 20230622, end: 20230626
  3. MAVENCLAD [Suspect]
     Active Substance: CLADRIBINE
     Dates: start: 202406
  4. MAVENCLAD [Suspect]
     Active Substance: CLADRIBINE

REACTIONS (5)
  - Acute respiratory distress syndrome [Recovering/Resolving]
  - Decreased appetite [Recovering/Resolving]
  - Weight decreased [Recovering/Resolving]
  - Abdominal pain [Recovering/Resolving]
  - Lymphocyte count decreased [Recovering/Resolving]

NARRATIVE: CASE EVENT DATE: 20250301
